FAERS Safety Report 5673145-6 (Version None)
Quarter: 2008Q1

REPORT INFORMATION
  Report Type: 
  Country: None (occurrence: None)
  Receive Date: 20080319
  Receipt Date: 20080307
  Transmission Date: 20080703
  Serious: Yes (Death)
  Sender: FDA-Public Use
  Company Number: JP-WYE-H03171908

PATIENT

DRUGS (1)
  1. AMIODARONE HCL [Suspect]
     Indication: VENTRICULAR TACHYCARDIA
     Dosage: 150 MG; RECEIVED 11 AMPULES (FREQUENCY UNSPECIFIED)
     Route: 042

REACTIONS (1)
  - CARDIAC FAILURE [None]
